FAERS Safety Report 9815705 (Version 2)
Quarter: 2014Q1

REPORT INFORMATION
  Report Type: Report from Study
  Country: JP (occurrence: JP)
  Receive Date: 20140114
  Receipt Date: 20140304
  Transmission Date: 20141002
  Serious: Yes (Death)
  Sender: FDA-Public Use
  Company Number: JP-ABBVIE-14P-087-1189688-00

PATIENT
  Age: 80 Year
  Sex: Male

DRUGS (10)
  1. LIPACREON [Suspect]
     Indication: PANCREATIC INSUFFICIENCY
     Route: 048
     Dates: start: 20130704, end: 20131130
  2. LANSOPRAZOLE [Concomitant]
     Indication: PANCREATITIS CHRONIC
     Route: 048
     Dates: end: 20131130
  3. STOMACHICS AND DIGESTIVES [Concomitant]
     Indication: PANCREATITIS CHRONIC
     Route: 048
  4. BUTYRIC ACID BACTERIA [Concomitant]
     Indication: PANCREATITIS CHRONIC
     Route: 048
     Dates: end: 20131130
  5. CLOTIAZEPAM [Concomitant]
     Indication: PRODUCT USED FOR UNKNOWN INDICATION
     Route: 048
     Dates: end: 20131130
  6. INSULIN ASPART [Concomitant]
     Indication: PRODUCT USED FOR UNKNOWN INDICATION
     Dates: end: 20131130
  7. CILNIDIPINE [Concomitant]
     Indication: PRODUCT USED FOR UNKNOWN INDICATION
     Route: 048
     Dates: end: 20131130
  8. EPALRESTAT [Concomitant]
     Indication: PRODUCT USED FOR UNKNOWN INDICATION
     Route: 048
     Dates: end: 20131130
  9. TELMISARTAN [Concomitant]
     Indication: PRODUCT USED FOR UNKNOWN INDICATION
     Route: 048
     Dates: end: 20131130
  10. PIPERACILLIN SODIUM W/TAZOBACTAM SODIUM [Concomitant]
     Indication: PNEUMONIA
     Dates: start: 20131127, end: 20131130

REACTIONS (2)
  - Pneumonia [Fatal]
  - Acute respiratory distress syndrome [Fatal]
